FAERS Safety Report 8494808-3 (Version None)
Quarter: 2012Q3

REPORT INFORMATION
  Report Type: 
  Country: None (occurrence: None)
  Receive Date: 20120709
  Receipt Date: 20120626
  Transmission Date: 20120928
  Serious: Yes (Other)
  Sender: FDA-Public Use
  Company Number: US-ELI_LILLY_AND_COMPANY-US201207000218

PATIENT
  Sex: Male

DRUGS (6)
  1. RISPERDAL [Concomitant]
     Dosage: 3 MG, QD
  2. KEFLEX [Concomitant]
     Dosage: 500 MG, BID
  3. FLOMAX [Concomitant]
     Dosage: 0.4 DF, QD
  4. STRATTERA [Suspect]
     Indication: ATTENTION DEFICIT/HYPERACTIVITY DISORDER
     Dosage: 80 MG, UNKNOWN
     Dates: start: 20111101, end: 20120524
  5. DOXYCYCLINE HYCLATE [Concomitant]
     Dosage: 100 MG, BID
  6. TRAZODONE HCL [Concomitant]
     Dosage: 200 DF, QD

REACTIONS (3)
  - ASPARTATE AMINOTRANSFERASE INCREASED [None]
  - INTENTIONAL DRUG MISUSE [None]
  - ALANINE AMINOTRANSFERASE INCREASED [None]
